FAERS Safety Report 5259753-5 (Version None)
Quarter: 2007Q1

REPORT INFORMATION
  Report Type: 
  Country: None (occurrence: None)
  Receive Date: 20070307
  Receipt Date: 20070301
  Transmission Date: 20070707
  Serious: No
  Sender: FDA-Public Use
  Company Number: TAP2007Q00296

PATIENT
  Age: 41 Year
  Sex: Female
  Weight: 86.2 kg

DRUGS (2)
  1. LUPRON DEPOT [Suspect]
     Indication: ENDOMETRIOSIS
     Dosage: 3.75 MG, 1 IN 1 M, INTRA-MUSCULAR
     Route: 030
     Dates: start: 20061001
  2. ATENOLOL [Concomitant]

REACTIONS (6)
  - DILATATION ATRIAL [None]
  - FATIGUE [None]
  - HEART RATE IRREGULAR [None]
  - HOT FLUSH [None]
  - JOINT STIFFNESS [None]
  - WEIGHT INCREASED [None]
